FAERS Safety Report 5856245-7 (Version None)
Quarter: 2008Q3

REPORT INFORMATION
  Report Type: 
  Country: None (occurrence: None)
  Receive Date: 20080825
  Receipt Date: 20080821
  Transmission Date: 20090109
  Serious: Yes (Hospitalization)
  Sender: FDA-Public Use
  Company Number: A0744155A

PATIENT
  Age: 57 Year
  Sex: Male
  Weight: 106.8 kg

DRUGS (4)
  1. AVANDIA [Suspect]
     Indication: DIABETES MELLITUS
     Dosage: 4MG TWICE PER DAY
     Route: 048
     Dates: start: 20010101, end: 20080201
  2. GLUCOPHAGE [Concomitant]
  3. METFORMIN [Concomitant]
  4. GLUCOTROL [Concomitant]
     Dates: start: 19950101

REACTIONS (1)
  - MYOCARDIAL INFARCTION [None]
